FAERS Safety Report 14846076 (Version 1)
Quarter: 2018Q2

REPORT INFORMATION
  Report Type: Report from Study
  Country: US (occurrence: US)
  Receive Date: 20180504
  Receipt Date: 20180504
  Transmission Date: 20180711
  Serious: Yes (Hospitalization)
  Sender: FDA-Public Use
  Company Number: US-ROCHE-2116541

PATIENT
  Age: 48 Year
  Sex: Female
  Weight: 60.3 kg

DRUGS (3)
  1. BEVACIZUMAB. [Suspect]
     Active Substance: BEVACIZUMAB
     Indication: OVARIAN CANCER
     Dosage: LAST ADMINISTRATION DATE : 11/APR/2018?OVER 90 MIN ON DAY 1 AND DAY 15
     Route: 042
     Dates: start: 20180328, end: 20180411
  2. LIPOSOMAL DOXORUBICIN [Suspect]
     Active Substance: DOXORUBICIN HYDROCHLORIDE
     Indication: OVARIAN CANCER
     Dosage: LAST ADMINISTRATION DATE :28/MAR/2018
     Route: 042
     Dates: start: 20180328
  3. ATEZOLIZUMAB. [Suspect]
     Active Substance: ATEZOLIZUMAB
     Indication: OVARIAN CANCER
     Dosage: LAST ADMINISTRATION DATE : 11/APR/2018?1 HOUR ON DAY 1 AND DAY 15
     Route: 042
     Dates: start: 20180328, end: 20180411

REACTIONS (4)
  - Nausea [Unknown]
  - Vomiting [Unknown]
  - Urinary fistula [Unknown]
  - Acute kidney injury [Unknown]

NARRATIVE: CASE EVENT DATE: 20180422
